FAERS Safety Report 7991558-4 (Version None)
Quarter: 2011Q4

REPORT INFORMATION
  Report Type: 
  Country: None (occurrence: None)
  Receive Date: 20111219
  Receipt Date: 20111213
  Transmission Date: 20120403
  Serious: Yes (Hospitalization, Other)
  Sender: FDA-Public Use
  Company Number: US-PFIZER INC-2011238482

PATIENT
  Sex: Male
  Weight: 19.9 kg

DRUGS (14)
  1. IMMUNE GLOBULIN (HUMAN) [Concomitant]
     Dosage: UNK
  2. NEURONTIN [Suspect]
     Indication: PAIN
     Dosage: 400 MG, 3X/DAY
  3. BENADRYL [Concomitant]
     Dosage: UNK
  4. MELATONIN [Concomitant]
     Dosage: UNK
  5. KEPPRA [Concomitant]
     Indication: EPILEPSY
     Dosage: 10 ML, UNK
     Route: 042
  6. DIAZEPAM [Concomitant]
     Indication: CONVULSION
     Dosage: 0.4 ML, UNK
     Route: 042
  7. SIMETHICONE [Concomitant]
     Dosage: UNK
  8. LOVENOX [Concomitant]
     Indication: COAGULOPATHY
     Dosage: UNK, DAILY
     Route: 058
  9. ALBUTEROL [Concomitant]
     Dosage: UNK
  10. RIFAXIMIN [Concomitant]
     Dosage: UNK
  11. IMMUNOGLOBULINS [Concomitant]
     Indication: IMMUNODEFICIENCY
     Dosage: UNK
  12. ACETAMINOPHEN [Concomitant]
     Dosage: UNK
  13. ATIVAN [Concomitant]
     Indication: CONVULSION
     Dosage: 0.3 ML, DAILY
  14. ZANTAC [Concomitant]

REACTIONS (5)
  - DIARRHOEA HAEMORRHAGIC [None]
  - HAEMATOCHEZIA [None]
  - GASTROINTESTINAL MUCOSAL EXFOLIATION [None]
  - ULCER HAEMORRHAGE [None]
  - PNEUMATOSIS INTESTINALIS [None]
